FAERS Safety Report 5746341-7 (Version None)
Quarter: 2008Q2

REPORT INFORMATION
  Report Type: 
  Country: None (occurrence: None)
  Receive Date: 20080522
  Receipt Date: 20080519
  Transmission Date: 20081010
  Serious: Yes (Hospitalization)
  Sender: FDA-Public Use
  Company Number: FR-WYE-G01555108

PATIENT
  Sex: Male
  Weight: 14.5 kg

DRUGS (1)
  1. ADVIL [Suspect]
     Indication: HEADACHE
     Dosage: ONE SINGLE DOSE
     Route: 048
     Dates: start: 20080329, end: 20080329

REACTIONS (2)
  - CONVULSION [None]
  - RENAL FAILURE ACUTE [None]
